FAERS Safety Report 20533835 (Version 2)
Quarter: 2022Q1

REPORT INFORMATION
  Report Type: Spontaneous
  Country: CA (occurrence: CA)
  Receive Date: 20220301
  Receipt Date: 20220331
  Transmission Date: 20220423
  Serious: Yes (Hospitalization, Other)
  Sender: FDA-Public Use
  Company Number: CA-CIPHER-2022-CA-000077

PATIENT
  Age: 54 Year
  Sex: Female

DRUGS (28)
  1. TRAMADOL HYDROCHLORIDE [Suspect]
     Active Substance: TRAMADOL HYDROCHLORIDE
     Indication: Product used for unknown indication
  2. LEVOTHYROXINE SODIUM [Suspect]
     Active Substance: LEVOTHYROXINE SODIUM
  3. LIOTHYRONINE SODIUM [Suspect]
     Active Substance: LIOTHYRONINE SODIUM
  4. METOPROLOL TARTRATE [Suspect]
     Active Substance: METOPROLOL TARTRATE
  5. MOMETASONE FUROATE [Suspect]
     Active Substance: MOMETASONE FUROATE
  6. MONTELUKAST SODIUM [Suspect]
     Active Substance: MONTELUKAST SODIUM
  7. NASONEX [Suspect]
     Active Substance: MOMETASONE FUROATE
  8. PERINDOPRIL [Suspect]
     Active Substance: PERINDOPRIL
  9. PREDNISONE [Suspect]
     Active Substance: PREDNISONE
  10. ALBUTEROL [Suspect]
     Active Substance: ALBUTEROL
  11. SODIUM BICARBONATE\SODIUM CHLORIDE [Suspect]
     Active Substance: SODIUM BICARBONATE\SODIUM CHLORIDE
  12. ACYCLOVIR SODIUM [Suspect]
     Active Substance: ACYCLOVIR SODIUM
  13. TRAZODONE HYDROCHLORIDE [Suspect]
     Active Substance: TRAZODONE HYDROCHLORIDE
  14. ALBUTEROL SULFATE [Concomitant]
     Active Substance: ALBUTEROL SULFATE
  15. VITAMIN B12 [Suspect]
     Active Substance: CYANOCOBALAMIN
  16. VITAMIN C [Suspect]
     Active Substance: ASCORBIC ACID
  17. CYANOCOBALAMIN [Suspect]
     Active Substance: CYANOCOBALAMIN
  18. ESOMEPRAZOLE [Suspect]
     Active Substance: ESOMEPRAZOLE
  19. SPIRONOLACTONE [Suspect]
     Active Substance: SPIRONOLACTONE
  20. VITAMIN D [Suspect]
     Active Substance: VITAMIN D NOS
  21. FORMOTEROL FUMARATE [Suspect]
     Active Substance: FORMOTEROL FUMARATE
  22. APIXABAN [Suspect]
     Active Substance: APIXABAN
  23. BUDESONIDE [Suspect]
     Active Substance: BUDESONIDE
     Dosage: 3 DOSAGE FORMS 1 EVERY 1 DAY
  24. BUPROPION [Suspect]
     Active Substance: BUPROPION
  25. CLONAZEPAM [Suspect]
     Active Substance: CLONAZEPAM
  26. ERGOCALCIFEROL [Suspect]
     Active Substance: ERGOCALCIFEROL
  27. ESOMEPRAZOLE MAGNESIUM [Suspect]
     Active Substance: ESOMEPRAZOLE MAGNESIUM
  28. HYALURONATE SODIUM [Suspect]
     Active Substance: HYALURONATE SODIUM

REACTIONS (22)
  - Headache [Recovered/Resolved]
  - Hypertension [Recovered/Resolved]
  - Hypothyroidism [Recovered/Resolved]
  - Loss of personal independence in daily activities [Recovered/Resolved]
  - Nephrectomy [Recovered/Resolved]
  - Polycystic ovaries [Recovered/Resolved]
  - Rhinitis allergic [Recovered/Resolved]
  - Sensitisation [Recovered/Resolved]
  - Sleep apnoea syndrome [Recovered/Resolved]
  - Sleep disorder due to a general medical condition [Recovered/Resolved]
  - Asthma [Recovered/Resolved]
  - Therapeutic product effect incomplete [Recovered/Resolved]
  - Dyspnoea [Unknown]
  - Renal disorder [Unknown]
  - Wheezing [Unknown]
  - Blood test abnormal [Recovered/Resolved]
  - Burning sensation [Recovered/Resolved]
  - Cardiac disorder [Recovered/Resolved]
  - Carpal tunnel syndrome [Recovered/Resolved]
  - Ejection fraction [Recovered/Resolved]
  - Fibromyalgia [Recovered/Resolved]
  - Gastrooesophageal reflux disease [Recovered/Resolved]
